FAERS Safety Report 24563065 (Version 1)
Quarter: 2024Q4

REPORT INFORMATION
  Report Type: Spontaneous
  Country: CA (occurrence: CA)
  Receive Date: 20241030
  Receipt Date: 20241030
  Transmission Date: 20250115
  Serious: Yes (Other)
  Sender: PFIZER
  Company Number: CA-PFIZER INC-202400288227

PATIENT
  Age: 56 Year
  Sex: Female
  Weight: 112 kg

DRUGS (9)
  1. RUXIENCE [Suspect]
     Active Substance: RITUXIMAB-PVVR
     Indication: Granulomatosis with polyangiitis
     Dosage: 1000 MG, EVERY 4 MONTH
     Route: 042
     Dates: start: 20240620
  2. RUXIENCE [Suspect]
     Active Substance: RITUXIMAB-PVVR
     Dosage: 1000 MG, SUBSEQUENT DAY 1 (EVERY 4 MONTH)
     Route: 042
     Dates: start: 20241024
  3. ALENDRONATE [Concomitant]
     Active Substance: ALENDRONATE SODIUM
     Dosage: 70 MG
  4. ESTRADIOL [Concomitant]
     Active Substance: ESTRADIOL
     Dosage: 37.5 MG
  5. LACTASE [Concomitant]
     Active Substance: LACTASE
     Dosage: 13.5 IU
  6. PREDNISONE [Concomitant]
     Active Substance: PREDNISONE
     Dosage: 30 MG
  7. PANTOPRAZOLE [Concomitant]
     Active Substance: PANTOPRAZOLE
     Dosage: 40 MG
  8. TAVNEOS [Concomitant]
     Active Substance: AVACOPAN
     Dosage: 30 MG
  9. ZOPICLONE [Concomitant]
     Active Substance: ZOPICLONE
     Dosage: 5.5 MG

REACTIONS (1)
  - Weight increased [Unknown]

NARRATIVE: CASE EVENT DATE: 20240101
